FAERS Safety Report 5280553-4 (Version None)
Quarter: 2007Q1

REPORT INFORMATION
  Report Type: 
  Country: None (occurrence: None)
  Receive Date: 20070329
  Receipt Date: 20070320
  Transmission Date: 20070707
  Serious: Yes (Life-Threatening, Hospitalization)
  Sender: FDA-Public Use
  Company Number: 2007AP01810

PATIENT
  Age: 39 Year
  Sex: Male

DRUGS (4)
  1. XYLOCAINE VISCOUS [Suspect]
     Indication: LOCAL ANAESTHESIA
     Route: 048
     Dates: start: 20070315, end: 20070315
  2. DORMICUM [Concomitant]
     Route: 042
     Dates: start: 20070315, end: 20070315
  3. BUSCOPAN [Concomitant]
     Route: 042
     Dates: start: 20070315, end: 20070315
  4. PRONASE MS [Concomitant]
     Route: 048
     Dates: start: 20070315, end: 20070315

REACTIONS (2)
  - ANAPHYLACTIC SHOCK [None]
  - VENTRICULAR FIBRILLATION [None]
